FAERS Safety Report 5468801-9 (Version None)
Quarter: 2007Q3

REPORT INFORMATION
  Report Type: 
  Country: None (occurrence: None)
  Receive Date: 20070926
  Receipt Date: 20070302
  Transmission Date: 20080115
  Serious: No
  Sender: FDA-Public Use
  Company Number: US-BOEHRINGER INGELHEIM PHARMACEUTICALS, INC.-2006-BP-11813BP

PATIENT
  Sex: Female

DRUGS (27)
  1. MIRAPEX [Suspect]
     Indication: RESTLESS LEGS SYNDROME
     Route: 048
     Dates: start: 20020301, end: 20050901
  2. ADVAIR DISKUS 100/50 [Concomitant]
     Dates: start: 20030327, end: 20040113
  3. ALBUTEROL [Concomitant]
     Route: 055
     Dates: start: 20030327
  4. ALLEGRA [Concomitant]
     Dates: start: 20020131, end: 20050412
  5. AMOXICILLIN/CLAV [Concomitant]
     Dates: start: 20050303
  6. CARMOL 40 CREAM [Concomitant]
     Route: 061
     Dates: start: 20030415
  7. DEPO-PROVERA [Concomitant]
     Dates: start: 20021031, end: 20040419
  8. FINACEA [Concomitant]
     Route: 061
     Dates: start: 20031018, end: 20051102
  9. FLUCONAZOLE [Concomitant]
     Dates: start: 20050422, end: 20050428
  10. IBUPROFEN [Concomitant]
     Dates: start: 20031002, end: 20040312
  11. MEDROXYPROGESTERONE [Concomitant]
     Dates: start: 20050105, end: 20051102
  12. METHYLPREDNISOLONE [Concomitant]
     Dates: start: 20040109
  13. NAPROXEN [Concomitant]
     Dates: start: 20050422, end: 20051102
  14. NASONEX [Concomitant]
     Dates: start: 20010621, end: 20020703
  15. NITROFURANTOIN MONO-MAC [Concomitant]
     Dates: start: 20050502
  16. OVCON-35 [Concomitant]
     Dates: start: 20030205, end: 20040109
  17. RESTORIL [Concomitant]
     Dates: start: 20031001, end: 20031130
  18. ROSANIL [Concomitant]
     Dates: start: 20030415, end: 20051019
  19. SINGULAIR [Concomitant]
     Dates: start: 20050330
  20. SKELAXIN [Concomitant]
     Dates: start: 20040109
  21. TEMAZEPAM [Concomitant]
     Dates: start: 20050301
  22. TRANDERMSCOP TTS PATCH [Concomitant]
     Dates: start: 20030128
  23. VIOXX [Concomitant]
     Dates: start: 20020922
  24. ZITHROMAX [Concomitant]
     Dates: start: 20030310
  25. ZONEGRAN [Concomitant]
     Dates: start: 20050301, end: 20051011
  26. ZYRTEC [Concomitant]
     Dates: start: 20050404, end: 20051102
  27. ACETAMINOPHEN AND HYDROCODONE BITARTRATE [Concomitant]
     Indication: PAIN
     Route: 048
     Dates: start: 20051101, end: 20051101

REACTIONS (13)
  - ANXIETY [None]
  - BRUXISM [None]
  - DEPRESSION [None]
  - DISTURBANCE IN ATTENTION [None]
  - FIBROMYALGIA [None]
  - HYPERPHAGIA [None]
  - INSOMNIA [None]
  - NECK PAIN [None]
  - OBSESSIVE-COMPULSIVE DISORDER [None]
  - PATHOLOGICAL GAMBLING [None]
  - STRESS [None]
  - TYPE 2 DIABETES MELLITUS [None]
  - WEIGHT INCREASED [None]
